FAERS Safety Report 13745055 (Version 1)
Quarter: 2017Q3

REPORT INFORMATION
  Report Type: Spontaneous
  Country: US (occurrence: US)
  Receive Date: 20170711
  Receipt Date: 20170711
  Transmission Date: 20171127
  Serious: Yes (Hospitalization, Disabling, Other)
  Sender: FDA-Public Use
  Company Number: None

PATIENT
  Age: 29 Year
  Sex: Female
  Weight: 99 kg

DRUGS (4)
  1. KLONOPIN [Suspect]
     Active Substance: CLONAZEPAM
     Indication: ANXIETY
     Dates: start: 20050502, end: 20170706
  2. VALIUM [Suspect]
     Active Substance: DIAZEPAM
  3. ATIVAN [Suspect]
     Active Substance: LORAZEPAM
  4. KLONOPIN [Suspect]
     Active Substance: CLONAZEPAM
     Indication: POST-TRAUMATIC STRESS DISORDER
     Dates: start: 20050502, end: 20170706

REACTIONS (36)
  - Speech disorder [None]
  - Petit mal epilepsy [None]
  - Formication [None]
  - Tachyphrenia [None]
  - Psychotic disorder [None]
  - Memory impairment [None]
  - Dysarthria [None]
  - Mood swings [None]
  - Toothache [None]
  - Paraesthesia [None]
  - Quality of life decreased [None]
  - Hallucination [None]
  - Dyspepsia [None]
  - Balance disorder [None]
  - Vertigo [None]
  - Tinnitus [None]
  - Hypertension [None]
  - Alopecia [None]
  - Migraine [None]
  - Weight increased [None]
  - Drug tolerance [None]
  - Feeling abnormal [None]
  - Cold sweat [None]
  - Paranoia [None]
  - Photosensitivity reaction [None]
  - Drug dependence [None]
  - Gait disturbance [None]
  - Fall [None]
  - Tremor [None]
  - Back pain [None]
  - Movement disorder [None]
  - Cognitive disorder [None]
  - Anger [None]
  - Withdrawal syndrome [None]
  - Panic attack [None]
  - Dyspnoea [None]

NARRATIVE: CASE EVENT DATE: 20050502
